FAERS Safety Report 18134768 (Version 2)
Quarter: 2020Q3

REPORT INFORMATION
  Report Type: Other
  Country: US (occurrence: US)
  Receive Date: 20200811
  Receipt Date: 20200826
  Transmission Date: 20201103
  Serious: Yes (Other)
  Sender: FDA-Public Use
  Company Number: US-ROCHE-1965200

PATIENT
  Sex: Male
  Weight: 111.23 kg

DRUGS (11)
  1. TAMSULOSIN [Concomitant]
     Active Substance: TAMSULOSIN
  2. RITUXAN [Suspect]
     Active Substance: RITUXIMAB
     Indication: MULTIPLE SCLEROSIS
     Route: 065
  3. BACLOFEN. [Concomitant]
     Active Substance: BACLOFEN
  4. AMANTADINE. [Concomitant]
     Active Substance: AMANTADINE HYDROCHLORIDE
  5. OCREVUS [Suspect]
     Active Substance: OCRELIZUMAB
     Dosage: ONGOING: YES; INFUSION,300MG/10 ML, 2 OF THESE EQUALS 600MG/20ML
     Route: 042
  6. METFORMIN [Concomitant]
     Active Substance: METFORMIN HYDROCHLORIDE
  7. AMPYRA [Concomitant]
     Active Substance: DALFAMPRIDINE
  8. TRULICITY [Concomitant]
     Active Substance: DULAGLUTIDE
  9. OCREVUS [Suspect]
     Active Substance: OCRELIZUMAB
     Indication: RELAPSING-REMITTING MULTIPLE SCLEROSIS
     Dosage: ONGOING ?YES
     Route: 042
  10. GLIPIZIDE. [Concomitant]
     Active Substance: GLIPIZIDE
  11. CIPROFLOXACIN. [Concomitant]
     Active Substance: CIPROFLOXACIN
     Route: 048

REACTIONS (4)
  - Off label use [Unknown]
  - Fall [Unknown]
  - Intentional product use issue [Unknown]
  - Urinary tract infection [Recovering/Resolving]
